FAERS Safety Report 4633358-9 (Version None)
Quarter: 2005Q2

REPORT INFORMATION
  Report Type: 
  Country: None (occurrence: None)
  Receive Date: 20050412
  Receipt Date: 20050404
  Transmission Date: 20051028
  Serious: Yes (Hospitalization)
  Sender: FDA-Public Use
  Company Number: 2005-127096-NL

PATIENT
  Age: 46 Year
  Sex: Male

DRUGS (5)
  1. MIRTAZAPINE [Suspect]
     Dosage: DF
  2. AMISULPRIDE [Suspect]
     Dosage: 400 MG
     Dates: start: 20041014, end: 20041020
  3. OLANZAPINE [Suspect]
     Dosage: DF
  4. CITALOPRAM HYDROBROMIDE [Suspect]
     Dosage: DF
  5. ZOPICLONE [Suspect]
     Dosage: DF

REACTIONS (8)
  - BLOOD CREATINE PHOSPHOKINASE INCREASED [None]
  - BLOOD PRESSURE FLUCTUATION [None]
  - EXTRAPYRAMIDAL DISORDER [None]
  - FEELING ABNORMAL [None]
  - HYPERHIDROSIS [None]
  - PARKINSONISM [None]
  - PYREXIA [None]
  - WEIGHT DECREASED [None]
